FAERS Safety Report 7394916-4 (Version None)
Quarter: 2011Q2

REPORT INFORMATION
  Report Type: 
  Country: None (occurrence: None)
  Receive Date: 20110405
  Receipt Date: 20110329
  Transmission Date: 20111010
  Serious: Yes (Hospitalization)
  Sender: FDA-Public Use
  Company Number: B0710140A

PATIENT
  Sex: Male
  Weight: 19.1 kg

DRUGS (13)
  1. ALKERAN [Suspect]
     Dosage: 40MG PER DAY
     Route: 042
     Dates: start: 20090514, end: 20090515
  2. HEPARIN SODIUM [Concomitant]
     Route: 042
     Dates: start: 20090507, end: 20090605
  3. THIOTEPA [Suspect]
     Dosage: 150MG PER DAY
     Route: 042
     Dates: start: 20090514, end: 20090515
  4. SOLDEM 3A [Concomitant]
     Route: 042
     Dates: start: 20090506, end: 20090521
  5. BAKTAR [Concomitant]
     Route: 048
     Dates: start: 20090506, end: 20090509
  6. KYTRIL [Concomitant]
     Route: 042
     Dates: start: 20090514, end: 20090516
  7. FLUMARIN [Concomitant]
     Route: 042
     Dates: start: 20090513, end: 20090520
  8. SOLDEM 3A [Concomitant]
     Route: 042
     Dates: start: 20090611, end: 20090611
  9. ALKERAN [Suspect]
     Indication: STEM CELL TRANSPLANT
     Dosage: 40MG PER DAY
     Route: 042
     Dates: start: 20090507, end: 20090508
  10. URSO 250 [Concomitant]
     Route: 048
     Dates: start: 20090506, end: 20090608
  11. THIOTEPA [Suspect]
     Indication: STEM CELL TRANSPLANT
     Dosage: 150MG PER DAY
     Route: 042
     Dates: start: 20090507, end: 20090508
  12. SOLDEM [Concomitant]
     Route: 042
     Dates: start: 20090506, end: 20090529
  13. KYTRIL [Concomitant]
     Route: 042
     Dates: start: 20090507, end: 20090509

REACTIONS (1)
  - BACTERIAL INFECTION [None]
